FAERS Safety Report 13167760 (Version 2)
Quarter: 2017Q1

REPORT INFORMATION
  Report Type: Spontaneous
  Country: SE (occurrence: SE)
  Receive Date: 20170131
  Receipt Date: 20170210
  Transmission Date: 20170428
  Serious: Yes (Other)
  Sender: FDA-Public Use
  Company Number: SE-TAKEDA-2017TEU000274

PATIENT
  Age: 2 Year
  Sex: Male

DRUGS (1)
  1. TACHOSIL [Suspect]
     Active Substance: FIBRINOGEN HUMAN\THROMBIN HUMAN
     Indication: OESOPHAGEAL OPERATION
     Dosage: UNK
     Route: 065
     Dates: start: 201606

REACTIONS (3)
  - Eating disorder [Not Recovered/Not Resolved]
  - Off label use [Unknown]
  - Medication residue present [Not Recovered/Not Resolved]
